FAERS Safety Report 7948717-6 (Version None)
Quarter: 2011Q4

REPORT INFORMATION
  Report Type: 
  Country: None (occurrence: None)
  Receive Date: 20111130
  Receipt Date: 20111121
  Transmission Date: 20120403
  Serious: Yes (Other)
  Sender: FDA-Public Use
  Company Number: US-JNJFOC-20111112191

PATIENT
  Sex: Female

DRUGS (4)
  1. FOLIC ACID [Concomitant]
     Indication: RHEUMATOID ARTHRITIS
     Route: 048
     Dates: start: 20080101
  2. PREDNISONE TAB [Concomitant]
     Indication: RHEUMATOID ARTHRITIS
     Route: 048
     Dates: start: 20070101
  3. TRAMADOL HYDROCHLORIDE [Suspect]
     Indication: RHEUMATOID ARTHRITIS
     Dosage: 4 TIMES DAILY
     Route: 048
     Dates: start: 20070101
  4. REMICADE [Concomitant]
     Indication: RHEUMATOID ARTHRITIS
     Route: 042
     Dates: start: 20080101, end: 20080101

REACTIONS (2)
  - RHEUMATOID ARTHRITIS [None]
  - RASH [None]
